FAERS Safety Report 20985876 (Version 1)
Quarter: 2022Q2

REPORT INFORMATION
  Report Type: Spontaneous
  Country: US (occurrence: None)
  Receive Date: 20220617
  Receipt Date: 20220617
  Transmission Date: 20220721
  Serious: Yes (Hospitalization)
  Sender: FDA-Public Use
  Company Number: None

PATIENT
  Sex: Male

DRUGS (3)
  1. HUMIRA [Suspect]
     Active Substance: ADALIMUMAB
     Indication: Rheumatoid arthritis
     Dosage: 40MG/0.8ML??INJECT CONTENTS OF 1 SYRINGE UNDER THE SKIN (SUBCUTANEOUS INJECTION) ONCE WEEKLY? ?
     Route: 058
     Dates: start: 20151029
  2. HUMIRA [Concomitant]
     Active Substance: ADALIMUMAB
  3. ZYRTEC ALLGY TAB [Concomitant]

REACTIONS (1)
  - Hospitalisation [None]
